FAERS Safety Report 16323430 (Version 1)
Quarter: 2019Q2

REPORT INFORMATION
  Report Type: Spontaneous
  Country: RU (occurrence: RU)
  Receive Date: 20190517
  Receipt Date: 20190517
  Transmission Date: 20190711
  Serious: Yes (Other)
  Sender: FDA-Public Use
  Company Number: RU-TEVA-2019-RU-1052130

PATIENT
  Age: 36 Year
  Sex: Female

DRUGS (1)
  1. FINLEPSIN [Suspect]
     Active Substance: CARBAMAZEPINE
     Route: 065
     Dates: start: 20190506

REACTIONS (10)
  - Lip swelling [Recovering/Resolving]
  - Burning sensation [Recovering/Resolving]
  - Mouth ulceration [Recovering/Resolving]
  - Angioedema [Recovering/Resolving]
  - Anal fissure [Recovering/Resolving]
  - Swelling [Recovering/Resolving]
  - Lip ulceration [Recovering/Resolving]
  - Dry skin [Recovering/Resolving]
  - Mucosal dryness [Recovering/Resolving]
  - Pruritus [Recovering/Resolving]

NARRATIVE: CASE EVENT DATE: 20190506
